FAERS Safety Report 24013749 (Version 1)
Quarter: 2024Q2

REPORT INFORMATION
  Report Type: Other
  Country: AU (occurrence: AU)
  Receive Date: 20240626
  Receipt Date: 20240626
  Transmission Date: 20240716
  Serious: Yes (Death, Other)
  Sender: FDA-Public Use
  Company Number: AU-ASTELLAS-2024US014791

PATIENT
  Age: 57 Year
  Sex: Male

DRUGS (7)
  1. MYCAMINE [Interacting]
     Active Substance: MICAFUNGIN SODIUM
     Indication: Scedosporium infection
     Route: 065
  2. MYCAMINE [Interacting]
     Active Substance: MICAFUNGIN SODIUM
     Route: 065
  3. CEFTAZIDIME [Suspect]
     Active Substance: CEFTAZIDIME
     Indication: Paracentesis eye
     Dosage: UNK UNK, UNKNOWN FREQ.
     Route: 065
  4. VANCOMYCIN [Suspect]
     Active Substance: VANCOMYCIN
     Indication: Paracentesis eye
     Dosage: UNK UNK, UNKNOWN FREQ.
     Route: 065
  5. TERBINAFINE [Interacting]
     Active Substance: TERBINAFINE
     Indication: Fungal infection
     Dosage: 250 MG, EVERY 12 HOURS (BID)
     Route: 065
  6. VORICONAZOLE [Interacting]
     Active Substance: VORICONAZOLE
     Indication: Scedosporium infection
     Dosage: 200 MG, EVERY 12 HOURS (BID)
     Route: 048
  7. VORICONAZOLE [Interacting]
     Active Substance: VORICONAZOLE
     Dosage: 250 MG, EVERY 12 HOURS (BID)
     Route: 048

REACTIONS (6)
  - Disease progression [Fatal]
  - Renal failure [Unknown]
  - Neutropenia [Unknown]
  - Pathogen resistance [Unknown]
  - Drug interaction [Unknown]
  - Off label use [Unknown]
